FAERS Safety Report 16462886 (Version 1)
Quarter: 2019Q2

REPORT INFORMATION
  Report Type: Spontaneous
  Country: US (occurrence: US)
  Receive Date: 20190512
  Receipt Date: 20190512
  Transmission Date: 20190711
  Serious: No
  Sender: FDA-Public Use
  Company Number: None

PATIENT
  Age: 60 Year
  Sex: Female

DRUGS (1)
  1. IBRANCE [Suspect]
     Active Substance: PALBOCICLIB
     Indication: NEOPLASM MALIGNANT
     Dosage: ?          OTHER FREQUENCY:DAILYX21DAYS, 7OFF;?
     Route: 048
     Dates: start: 201803, end: 201905

REACTIONS (2)
  - Skin disorder [None]
  - Drug ineffective [None]

NARRATIVE: CASE EVENT DATE: 201905
